FAERS Safety Report 4477784-X (Version None)
Quarter: 2004Q4

REPORT INFORMATION
  Report Type: 
  Country: None (occurrence: None)
  Receive Date: 20041014
  Receipt Date: 20041012
  Transmission Date: 20050328
  Serious: Yes (Other)
  Sender: FDA-Public Use
  Company Number: THQ2004A00887

PATIENT
  Age: 36 Year
  Sex: Female

DRUGS (3)
  1. PREVPAC [Suspect]
     Indication: DYSPEPSIA
     Dosage: (2 IN 1 D) PER ORAL
     Route: 048
     Dates: start: 20040829, end: 20040902
  2. IBUPROFEN [Concomitant]
  3. RANITIDINE [Concomitant]

REACTIONS (3)
  - AGITATION [None]
  - DEPRESSION [None]
  - PARANOIA [None]
